FAERS Safety Report 4724960-4 (Version None)
Quarter: 2005Q3

REPORT INFORMATION
  Report Type: 
  Country: None (occurrence: None)
  Receive Date: 20050726
  Receipt Date: 20050714
  Transmission Date: 20060218
  Serious: Yes (Other)
  Sender: FDA-Public Use
  Company Number: US-ROCHE-410914

PATIENT
  Sex: Male

DRUGS (5)
  1. VALIUM [Suspect]
     Indication: DRUG USE FOR UNKNOWN INDICATION
     Route: 048
  2. CONDYLOX [Suspect]
     Dosage: SMALL AMOUNT/DAB ON AREA.
     Route: 002
     Dates: start: 20050425, end: 20050425
  3. FLEXERIL [Suspect]
     Indication: DRUG USE FOR UNKNOWN INDICATION
     Route: 048
  4. FENTANYL [Suspect]
     Indication: DRUG USE FOR UNKNOWN INDICATION
     Route: 062
  5. ACE INHIBITOR [Concomitant]

REACTIONS (7)
  - ABNORMAL BEHAVIOUR [None]
  - COORDINATION ABNORMAL [None]
  - DRUG TOXICITY [None]
  - DYSARTHRIA [None]
  - MENTAL STATUS CHANGES [None]
  - RENAL CYST [None]
  - RENAL FAILURE [None]
